FAERS Safety Report 7611899-X (Version None)
Quarter: 2011Q3

REPORT INFORMATION
  Report Type: 
  Country: None (occurrence: None)
  Receive Date: 20110715
  Receipt Date: 20110705
  Transmission Date: 20111222
  Serious: Yes (Hospitalization)
  Sender: FDA-Public Use
  Company Number: CA-JNJFOC-20110704288

PATIENT
  Sex: Female
  Weight: 85.37 kg

DRUGS (1)
  1. REMICADE [Suspect]
     Indication: CROHN'S DISEASE
     Route: 042

REACTIONS (6)
  - MATERNAL EXPOSURE DURING PREGNANCY [None]
  - CHEST PAIN [None]
  - COUGH [None]
  - FLUSHING [None]
  - HYPERHIDROSIS [None]
  - SNEEZING [None]
